FAERS Safety Report 17133079 (Version 1)
Quarter: 2019Q4

REPORT INFORMATION
  Report Type: Spontaneous
  Country: US (occurrence: US)
  Receive Date: 20191116
  Receipt Date: 20191116
  Transmission Date: 20200122
  Serious: No
  Sender: FDA-Public Use
  Company Number: None

PATIENT
  Sex: Female

DRUGS (8)
  1. PREDNISOLONE ACETATE EYE DROPS [Suspect]
     Active Substance: PREDNISOLONE
     Indication: GLAUCOMA
     Dosage: ?          QUANTITY:1 GTT DROP(S);OTHER ROUTE:ONE DROP INTO LEFT EYE?
     Dates: start: 20190809, end: 20190815
  2. ALEVE [Concomitant]
     Active Substance: NAPROXEN SODIUM
  3. METHOCARBAMO [Concomitant]
  4. PREDNISONE. [Concomitant]
     Active Substance: PREDNISONE
  5. TYLENLO [Concomitant]
  6. GABAPENTIN. [Concomitant]
     Active Substance: GABAPENTIN
  7. NAPROXEN. [Concomitant]
     Active Substance: NAPROXEN
  8. MELOXICAN [Concomitant]
     Active Substance: MELOXICAM

REACTIONS (6)
  - Joint stiffness [None]
  - Arthralgia [None]
  - Loss of personal independence in daily activities [None]
  - Discomfort [None]
  - Joint swelling [None]
  - Pain [None]

NARRATIVE: CASE EVENT DATE: 20190815
